FAERS Safety Report 5021457-1 (Version None)
Quarter: 2006Q2

REPORT INFORMATION
  Report Type: 
  Country: None (occurrence: None)
  Receive Date: 20060605
  Receipt Date: 20060523
  Transmission Date: 20061013
  Serious: Yes (Hospitalization, Other)
  Sender: FDA-Public Use
  Company Number: 2005024257

PATIENT
  Sex: Male

DRUGS (1)
  1. BEXTRA [Suspect]
     Indication: MUSCULOSKELETAL DISORDER
     Dosage: 20 MG (20 MG, 1 IN 1 D)
     Dates: start: 20020501

REACTIONS (8)
  - ANGIOPATHY [None]
  - ARTERIOSCLEROSIS [None]
  - CARDIAC DISORDER [None]
  - CARDIAC FAILURE CONGESTIVE [None]
  - HAEMORRHAGIC STROKE [None]
  - HYPERTENSION [None]
  - SILENT MYOCARDIAL INFARCTION [None]
  - THROMBOSIS [None]
